FAERS Safety Report 23373820 (Version 1)
Quarter: 2024Q1

REPORT INFORMATION
  Report Type: Spontaneous
  Country: US (occurrence: US)
  Receive Date: 20240105
  Receipt Date: 20240105
  Transmission Date: 20240410
  Serious: No
  Sender: FDA-Public Use
  Company Number: US-COOPERSURGICAL, INC.-US-2023CPS002278

PATIENT
  Age: 21 Year
  Sex: Female
  Weight: 80.726 kg

DRUGS (2)
  1. PARAGARD T 380A [Suspect]
     Active Substance: COPPER
     Indication: Contraception
     Dosage: UNK
     Route: 015
     Dates: start: 20230105, end: 20230630
  2. ADDERALL [Concomitant]
     Active Substance: AMPHETAMINE ASPARTATE\AMPHETAMINE SULFATE\DEXTROAMPHETAMINE SACCHARATE\DEXTROAMPHETAMINE SULFATE
     Indication: Product used for unknown indication
     Dosage: 20 MG
     Route: 065

REACTIONS (5)
  - Sensation of foreign body [Recovered/Resolved]
  - Device expulsion [Recovered/Resolved]
  - Dysmenorrhoea [Recovered/Resolved]
  - Intermenstrual bleeding [Recovered/Resolved]
  - Intentional medical device removal by patient [Unknown]

NARRATIVE: CASE EVENT DATE: 20230601
